FAERS Safety Report 13834340 (Version 2)
Quarter: 2017Q3

REPORT INFORMATION
  Report Type: Spontaneous
  Country: US (occurrence: US)
  Receive Date: 20170804
  Receipt Date: 20170807
  Transmission Date: 20171127
  Serious: No
  Sender: FDA-Public Use
  Company Number: US-PFIZER INC-2017332784

PATIENT
  Age: 60 Year
  Sex: Female
  Weight: 54.43 kg

DRUGS (5)
  1. IBRANCE [Suspect]
     Active Substance: PALBOCICLIB
     Indication: BREAST CANCER METASTATIC
     Dosage: 125 MG, CYCLIC (DAILY FOR 21 DAYS ON AND 7 DAYS OFF)
     Route: 048
  2. FASLODEX [Concomitant]
     Active Substance: FULVESTRANT
     Dosage: INJECTION ONCE A MONTH
  3. XGEVA [Concomitant]
     Active Substance: DENOSUMAB
     Indication: DRUG THERAPY
     Dosage: INJECTION ONCE A MONTH
  4. FASLODEX [Concomitant]
     Active Substance: FULVESTRANT
     Indication: DRUG THERAPY
     Dosage: INJECTION EVERY TWO WEEKS
  5. BUPROPION. [Concomitant]
     Active Substance: BUPROPION
     Indication: HOT FLUSH
     Dosage: UNK

REACTIONS (6)
  - Lethargy [Not Recovered/Not Resolved]
  - Bone pain [Not Recovered/Not Resolved]
  - Weight increased [Unknown]
  - Metabolic disorder [Unknown]
  - Condition aggravated [Not Recovered/Not Resolved]
  - Diarrhoea [Unknown]

NARRATIVE: CASE EVENT DATE: 2017
